FAERS Safety Report 7146486-3 (Version None)
Quarter: 2010Q4

REPORT INFORMATION
  Report Type: 
  Country: None (occurrence: None)
  Receive Date: 20101208
  Receipt Date: 20101028
  Transmission Date: 20110411
  Serious: Yes (Other)
  Sender: FDA-Public Use
  Company Number: US-NAPPMUNDI-USA-2010-0047287

PATIENT
  Age: 54 Year
  Sex: Male

DRUGS (1)
  1. OXYCONTIN [Suspect]
     Indication: PAIN
     Dosage: 60 MG, TID
     Dates: start: 20100908

REACTIONS (10)
  - CHOKING [None]
  - DRUG INEFFECTIVE [None]
  - FEELING ABNORMAL [None]
  - GASTRIC DISORDER [None]
  - HAEMOPTYSIS [None]
  - INADEQUATE ANALGESIA [None]
  - INCREASED UPPER AIRWAY SECRETION [None]
  - MALAISE [None]
  - NAUSEA [None]
  - PALPITATIONS [None]
